FAERS Safety Report 17545519 (Version 1)
Quarter: 2020Q1

REPORT INFORMATION
  Report Type: Spontaneous
  Country: NL (occurrence: NL)
  Receive Date: 20200316
  Receipt Date: 20200316
  Transmission Date: 20200409
  Serious: Yes (Hospitalization)
  Sender: FDA-Public Use
  Company Number: NVSC2020NL072449

PATIENT
  Age: 74 Year
  Sex: Male

DRUGS (6)
  1. TRIFLUSAL [Suspect]
     Active Substance: TRIFLUSAL
     Indication: MYOCARDIAL ISCHAEMIA
     Dosage: 600 MG
     Route: 065
  2. EZETIMIBE/SIMVASTATIN [Concomitant]
     Active Substance: EZETIMIBE\SIMVASTATIN
     Indication: MYOCARDIAL ISCHAEMIA
     Route: 065
  3. BETAXOLOL. [Concomitant]
     Active Substance: BETAXOLOL
     Indication: MYOCARDIAL ISCHAEMIA
     Dosage: 10 MG
     Route: 065
  4. HYDROCHLOROTHIAZIDE,IRBESARTAN [Suspect]
     Active Substance: HYDROCHLOROTHIAZIDE\IRBESARTAN
     Indication: MYOCARDIAL ISCHAEMIA
     Dosage: UNK (ADMINISTERED DAILY )
     Route: 065
  5. LITHIUM. [Suspect]
     Active Substance: LITHIUM
     Indication: BIPOLAR DISORDER
     Route: 065
  6. LEVOTHYROXINE. [Concomitant]
     Active Substance: LEVOTHYROXINE
     Indication: HYPOTHYROIDISM
     Route: 065

REACTIONS (1)
  - Toxicity to various agents [Recovering/Resolving]
